FAERS Safety Report 6925506-2 (Version None)
Quarter: 2010Q3

REPORT INFORMATION
  Report Type: 
  Country: None (occurrence: None)
  Receive Date: 20100816
  Receipt Date: 20100810
  Transmission Date: 20110219
  Serious: Yes (Hospitalization, Other)
  Sender: FDA-Public Use
  Company Number: US-ROCHE-720376

PATIENT
  Age: 39 Year
  Sex: Female

DRUGS (1)
  1. PEGASYS [Suspect]
     Indication: PRODUCT USED FOR UNKNOWN INDICATION
     Dosage: RECEIVED TWO DOSES
     Route: 065

REACTIONS (2)
  - PNEUMONIA [None]
  - TRACHEAL OPERATION [None]
